FAERS Safety Report 14805388 (Version 1)
Quarter: 2018Q2

REPORT INFORMATION
  Report Type: Spontaneous
  Country: ES (occurrence: ES)
  Receive Date: 20180425
  Receipt Date: 20180425
  Transmission Date: 20180711
  Serious: Yes (Other)
  Sender: FDA-Public Use
  Company Number: ES-ALEXION-A201804626

PATIENT
  Age: 66 Year
  Sex: Male

DRUGS (3)
  1. SOLIRIS [Suspect]
     Active Substance: ECULIZUMAB
     Indication: OFF LABEL USE
     Dosage: 1200 MG, Q2W DURING 2 MONTHS
     Route: 065
  2. SOLIRIS [Suspect]
     Active Substance: ECULIZUMAB
     Dosage: 1500 MG, UNK
     Route: 065
  3. SOLIRIS [Suspect]
     Active Substance: ECULIZUMAB
     Indication: RENAL DISORDER
     Dosage: 900 MG, QW FOR FOUR WEEKS
     Route: 065

REACTIONS (5)
  - Haematuria [Unknown]
  - Off label use [Unknown]
  - Renal impairment [Unknown]
  - Proteinuria [Unknown]
  - Acidosis [Unknown]
